FAERS Safety Report 25429544 (Version 1)
Quarter: 2025Q2

REPORT INFORMATION
  Report Type: Report from Study
  Country: US (occurrence: US)
  Receive Date: 20250612
  Receipt Date: 20250612
  Transmission Date: 20250716
  Serious: Yes (Other)
  Sender: JOHNSON AND JOHNSON
  Company Number: US-JNJFOC-20250609458

PATIENT
  Age: 53 Year
  Sex: Female

DRUGS (1)
  1. SPRAVATO [Suspect]
     Active Substance: ESKETAMINE
     Indication: Depression
     Route: 045
     Dates: start: 20250530, end: 20250603

REACTIONS (3)
  - Hallucination [Unknown]
  - Diarrhoea [Unknown]
  - Visual impairment [Unknown]

NARRATIVE: CASE EVENT DATE: 20250601
